FAERS Safety Report 19069498 (Version 1)
Quarter: 2021Q1

REPORT INFORMATION
  Report Type: Spontaneous
  Country: IE (occurrence: IE)
  Receive Date: 20210329
  Receipt Date: 20210329
  Transmission Date: 20210420
  Serious: Yes (Other)
  Sender: FDA-Public Use
  Company Number: IE-TAKEDA-2021TUS016873

PATIENT
  Age: 49 Year
  Sex: Female
  Weight: 57 kg

DRUGS (1)
  1. KIOVIG [Suspect]
     Active Substance: HUMAN IMMUNOGLOBULIN G
     Indication: MYASTHENIA GRAVIS
     Dosage: 45G OVER TWO DAYS EVERY FOUR WEEKS.?INFUSED OVER 2HRS 30MINS.
     Route: 042
     Dates: start: 20210209

REACTIONS (4)
  - Pruritus [Unknown]
  - Urticaria [Unknown]
  - Rash erythematous [Unknown]
  - Feeling hot [Unknown]

NARRATIVE: CASE EVENT DATE: 20210209
